FAERS Safety Report 23825115 (Version 1)
Quarter: 2024Q2

REPORT INFORMATION
  Report Type: Spontaneous
  Country: US (occurrence: None)
  Receive Date: 20240506
  Receipt Date: 20240506
  Transmission Date: 20240716
  Serious: Yes (Other)
  Sender: FDA-Public Use
  Company Number: None

PATIENT
  Age: 44 Year
  Sex: Female

DRUGS (4)
  1. ENBREL [Suspect]
     Active Substance: BENZYL ALCOHOL\ETANERCEPT
     Indication: Rheumatoid arthritis
     Dosage: FREQ: ADMINISTER 50 MG SUBCUTAEOUSLY EVERY WEEK FOR 4 WEEKS
     Route: 058
     Dates: start: 20210428
  2. BUSPIRONE [Concomitant]
  3. LEVOTHYROXIN [Concomitant]
  4. PANTOPRAZOLE [Concomitant]

REACTIONS (4)
  - Intentional dose omission [None]
  - Surgery [None]
  - Condition aggravated [None]
  - Loss of personal independence in daily activities [None]

NARRATIVE: CASE EVENT DATE: 20240101
